FAERS Safety Report 7091590-1 (Version None)
Quarter: 2010Q4

REPORT INFORMATION
  Report Type: 
  Country: None (occurrence: None)
  Receive Date: 20101109
  Receipt Date: 20101108
  Transmission Date: 20110411
  Serious: Yes (Hospitalization)
  Sender: FDA-Public Use
  Company Number: GXKR2010DE12515

PATIENT
  Age: 82 Year
  Sex: Female
  Weight: 58 kg

DRUGS (13)
  1. ACETYLSALICYLIC ACID SRT [Suspect]
     Indication: ISCHAEMIC HEART DISEASE PROPHYLAXIS
     Dosage: 100 MG, QD
     Route: 048
     Dates: start: 20100101, end: 20100716
  2. PREDNISOLONE [Suspect]
     Indication: POLYMYALGIA RHEUMATICA
     Dosage: 12.5 MG, QD
     Route: 048
     Dates: start: 20100320
  3. DICLOFENAC (NGX) [Suspect]
     Indication: POLYMYALGIA RHEUMATICA
     Dosage: 75 MG, BID
     Route: 048
     Dates: start: 20100301, end: 20100706
  4. ALLOPURINOL [Concomitant]
     Route: 048
  5. CALCIMAGON-D3 [Concomitant]
     Route: 048
  6. CARVEDILOL [Concomitant]
     Route: 048
  7. MESALAZINE [Concomitant]
     Route: 048
  8. PANTOPRAZOLE [Concomitant]
     Route: 048
  9. SIMVASTATIN [Concomitant]
     Route: 048
  10. FUROSEMIDE W/SPIRONOLACTONE [Concomitant]
     Route: 048
  11. THYRONAJOD [Concomitant]
     Route: 048
  12. TILIDINE [Concomitant]
     Route: 048
  13. ATACAND [Concomitant]
     Route: 048

REACTIONS (1)
  - COLITIS [None]
